FAERS Safety Report 4414722-X (Version None)
Quarter: 2004Q3

REPORT INFORMATION
  Report Type: 
  Country: None (occurrence: None)
  Receive Date: 20040804
  Receipt Date: 20030721
  Transmission Date: 20050211
  Serious: No
  Sender: FDA-Public Use
  Company Number: US-BRISTOL-MYERS SQUIBB COMPANY-12331542

PATIENT
  Age: 72 Year
  Sex: Female

DRUGS (5)
  1. GLUCOVANCE [Suspect]
     Indication: DIABETES MELLITUS
     Route: 048
     Dates: start: 20030719
  2. TEGRETOL [Concomitant]
  3. NEURONTIN [Concomitant]
  4. ACTOS [Concomitant]
  5. ZESTORETIC [Concomitant]

REACTIONS (1)
  - ABDOMINAL PAIN [None]
